FAERS Safety Report 8229610-0 (Version None)
Quarter: 2012Q1

REPORT INFORMATION
  Report Type: 
  Country: None (occurrence: None)
  Receive Date: 20120322
  Receipt Date: 20120315
  Transmission Date: 20120608
  Serious: Yes (Other)
  Sender: FDA-Public Use
  Company Number: PHEH2012US002118

PATIENT
  Sex: Female

DRUGS (8)
  1. SABRIL [Concomitant]
  2. ANTIDEPRESSANTS [Concomitant]
  3. PRILOSEC [Concomitant]
  4. KLONOPIN [Concomitant]
  5. AFINITOR [Suspect]
     Indication: ASTROCYTOMA, LOW GRADE
  6. AFINITOR [Suspect]
     Indication: TUBEROUS SCLEROSIS
     Dosage: 7.5 MG, DAILY
     Route: 048
     Dates: start: 20110131
  7. TOPAMAX [Concomitant]
  8. LEXAPRO [Concomitant]

REACTIONS (3)
  - CONVULSION [None]
  - FLUSHING [None]
  - LIP DISORDER [None]
